FAERS Safety Report 10003802 (Version 2)
Quarter: 2014Q1

REPORT INFORMATION
  Report Type: Spontaneous
  Country: CA (occurrence: CA)
  Receive Date: 20140312
  Receipt Date: 20140312
  Transmission Date: 20141002
  Serious: Yes (Hospitalization)
  Sender: FDA-Public Use
  Company Number: CA-BAXTER-2014BAX010519

PATIENT
  Age: 21 Year
  Sex: Female

DRUGS (3)
  1. DIANEAL PD4 SOLUTION WITH 1.5% DEXTROSE AND 2.5 MEQ/L CALCIUM [Suspect]
     Indication: RENAL FAILURE
     Route: 033
     Dates: start: 2013, end: 20140226
  2. EXTRANEAL [Suspect]
     Indication: RENAL FAILURE
     Route: 033
     Dates: start: 2013
  3. DILANTIN [Concomitant]
     Indication: CONVULSION
     Dosage: 3 TABLETS

REACTIONS (2)
  - Convulsion [Recovering/Resolving]
  - Pulmonary oedema [Recovering/Resolving]
